FAERS Safety Report 10502399 (Version 5)
Quarter: 2015Q2

REPORT INFORMATION
  Report Type: Spontaneous
  Country: US (occurrence: US)
  Receive Date: 20141007
  Receipt Date: 20150511
  Transmission Date: 20150821
  Serious: Yes (Hospitalization)
  Sender: FDA-Public Use
  Company Number: US-PFIZER INC-2014271835

PATIENT
  Age: 58 Year
  Sex: Female
  Weight: 49 kg

DRUGS (7)
  1. SYNTHROID [Concomitant]
     Active Substance: LEVOTHYROXINE SODIUM
     Dosage: UNK
     Dates: start: 1993
  2. SUTENT [Suspect]
     Active Substance: SUNITINIB MALATE
     Dosage: UNK
     Dates: start: 20140930
  3. SANDOSTATIN [Concomitant]
     Active Substance: OCTREOTIDE ACETATE
     Dosage: UNK
     Dates: start: 201307, end: 20141231
  4. SUTENT [Suspect]
     Active Substance: SUNITINIB MALATE
     Indication: NEUROENDOCRINE CARCINOMA METASTATIC
     Dosage: 37.5 MG, UNK
     Dates: start: 2013, end: 201312
  5. AMLODIPINE [Concomitant]
     Active Substance: AMLODIPINE BESYLATE
     Dosage: UNK
     Dates: start: 20140122
  6. FLU VACCINE [Concomitant]
     Active Substance: INFLUENZA VIRUS VACCINE
     Dosage: ANNUALLY
     Dates: start: 20071009
  7. SUTENT [Suspect]
     Active Substance: SUNITINIB MALATE
     Dosage: 25 MG, UNK
     Dates: start: 201312, end: 201502

REACTIONS (19)
  - Haematuria [Recovered/Resolved]
  - Rash [Recovered/Resolved]
  - Blood pressure increased [Not Recovered/Not Resolved]
  - Nasal dryness [Unknown]
  - Neuroendocrine carcinoma metastatic [Not Recovered/Not Resolved]
  - Hyponatraemia [Recovered/Resolved]
  - Palmar-plantar erythrodysaesthesia syndrome [Recovered/Resolved]
  - Gait disturbance [Recovered/Resolved]
  - Stomatitis [Recovered/Resolved]
  - Blister [Recovered/Resolved]
  - Haematuria [Recovered/Resolved]
  - Dry mouth [Not Recovered/Not Resolved]
  - Dysgeusia [Not Recovered/Not Resolved]
  - Disease progression [Not Recovered/Not Resolved]
  - Haematuria [Recovered/Resolved]
  - Pruritus [Recovered/Resolved]
  - Skin haemorrhage [Recovered/Resolved]
  - Pain in extremity [Unknown]
  - White blood cell count decreased [Unknown]

NARRATIVE: CASE EVENT DATE: 201311
